FAERS Safety Report 19153388 (Version 2)
Quarter: 2021Q2

REPORT INFORMATION
  Report Type: Spontaneous
  Country: DE (occurrence: DE)
  Receive Date: 20210419
  Receipt Date: 20210504
  Transmission Date: 20210717
  Serious: Yes (Other)
  Sender: FDA-Public Use
  Company Number: DE-OTSUKA-2021_012592

PATIENT
  Age: 35 Year
  Sex: Female

DRUGS (2)
  1. L?THYROXINE [LEVOTHYROXINE] [Concomitant]
     Active Substance: LEVOTHYROXINE
     Indication: PRODUCT USED FOR UNKNOWN INDICATION
     Dosage: UNK
     Route: 065
  2. ARIPIPRAZOLE. [Suspect]
     Active Substance: ARIPIPRAZOLE
     Indication: PRODUCT USED FOR UNKNOWN INDICATION
     Dosage: PROBABLY ALREADY MIXED IN SEVERAL TIMES (COFFEE, DRINK, FOOD)
     Route: 048

REACTIONS (5)
  - Accidental exposure to product [Unknown]
  - Illusion [Recovered/Resolved]
  - Feeling abnormal [Recovered/Resolved]
  - Renal disorder [Recovered/Resolved]
  - Tunnel vision [Recovered/Resolved]
